FAERS Safety Report 7939036-2 (Version None)
Quarter: 2011Q4

REPORT INFORMATION
  Report Type: 
  Country: None (occurrence: None)
  Receive Date: 20111124
  Receipt Date: 20111122
  Transmission Date: 20120403
  Serious: Yes (Life-Threatening, Hospitalization, Other)
  Sender: FDA-Public Use
  Company Number: FR-PFIZER INC-2011076947

PATIENT
  Age: 47 Year
  Sex: Female
  Weight: 70 kg

DRUGS (5)
  1. LYRICA [Suspect]
     Dosage: 75 MG, 2X/DAY
     Route: 048
     Dates: start: 20100917, end: 20101125
  2. TOPIRAMATE [Concomitant]
     Indication: EPILEPSY
     Dosage: 200 MG DAILY
     Route: 048
  3. LANSOPRAZOLE [Concomitant]
     Dosage: UNK
  4. LYRICA [Suspect]
     Indication: NEURALGIA
     Dosage: 25 MG, 2X/DAY
     Route: 048
     Dates: start: 20100901, end: 20100916
  5. LAMICTAL [Concomitant]
     Indication: EPILEPSY
     Dosage: 400 MG DAILY
     Route: 048

REACTIONS (1)
  - STATUS EPILEPTICUS [None]
